FAERS Safety Report 22596172 (Version 1)
Quarter: 2023Q2

REPORT INFORMATION
  Report Type: Spontaneous
  Country: IT (occurrence: IT)
  Receive Date: 20230613
  Receipt Date: 20230613
  Transmission Date: 20230721
  Serious: Yes (Other)
  Sender: FDA-Public Use
  Company Number: None

PATIENT
  Age: 22 Year
  Sex: Male
  Weight: 76 kg

DRUGS (1)
  1. INFLIXIMAB [Suspect]
     Active Substance: INFLIXIMAB
     Indication: Crohn^s disease
     Dosage: 5 MG PER KG. EVERY 8 WEEKS; THERE WAS A LOSS OF RESPONSE
     Route: 042
     Dates: start: 201901, end: 202301

REACTIONS (2)
  - Crohn^s disease [Recovering/Resolving]
  - Loss of therapeutic response [Recovered/Resolved]

NARRATIVE: CASE EVENT DATE: 20230110
